FAERS Safety Report 13062140 (Version 1)
Quarter: 2016Q4

REPORT INFORMATION
  Report Type: Spontaneous
  Country: US (occurrence: US)
  Receive Date: 20161226
  Receipt Date: 20161226
  Transmission Date: 20170207
  Serious: No
  Sender: FDA-Public Use
  Company Number: US-ASTRAZENECA-2016SF32925

PATIENT
  Age: 952 Month
  Sex: Female
  Weight: 74.4 kg

DRUGS (3)
  1. CRESTOR [Suspect]
     Active Substance: ROSUVASTATIN CALCIUM
     Indication: BLOOD CHOLESTEROL INCREASED
     Route: 048
     Dates: end: 201612
  2. CRESTOR [Suspect]
     Active Substance: ROSUVASTATIN CALCIUM
     Indication: BLOOD CHOLESTEROL INCREASED
     Route: 048
  3. DIOVAN [Concomitant]
     Active Substance: VALSARTAN
     Indication: HYPOTENSION
     Route: 048
     Dates: start: 2012

REACTIONS (7)
  - Pain [Unknown]
  - Headache [Unknown]
  - Ligament sprain [Unknown]
  - Myalgia [Unknown]
  - Arthralgia [Unknown]
  - Muscle spasms [Unknown]
  - Drug dose omission [Unknown]

NARRATIVE: CASE EVENT DATE: 201609
